FAERS Safety Report 5369690-3 (Version None)
Quarter: 2007Q2

REPORT INFORMATION
  Report Type: 
  Country: None (occurrence: None)
  Receive Date: 20070621
  Receipt Date: 20070605
  Transmission Date: 20071010
  Serious: Yes (Other)
  Sender: FDA-Public Use
  Company Number: DSA_30116_2007

PATIENT
  Age: 37 Year
  Sex: Female

DRUGS (3)
  1. DILTIAZEM [Suspect]
     Dosage: 300 MG QD
     Dates: start: 20061024
  2. BENDROFLUAZIDE [Concomitant]
  3. IRBESARTAN [Concomitant]

REACTIONS (3)
  - ANGIOEDEMA [None]
  - RASH PAPULAR [None]
  - URTICARIA [None]
